FAERS Safety Report 6906302-9 (Version None)
Quarter: 2010Q3

REPORT INFORMATION
  Report Type: 
  Country: None (occurrence: None)
  Receive Date: 20100804
  Receipt Date: 20100728
  Transmission Date: 20110219
  Serious: Yes (Disabling)
  Sender: FDA-Public Use
  Company Number: B0663844A

PATIENT
  Sex: Female

DRUGS (6)
  1. NIQUITIN CQ CLEAR 21MG [Suspect]
     Indication: PRODUCT USED FOR UNKNOWN INDICATION
     Route: 062
     Dates: start: 20100606, end: 20100701
  2. VASCALPHA [Concomitant]
  3. SIMVASTATIN [Concomitant]
  4. SOLUBLE ASPIRIN [Concomitant]
  5. NULYTELY [Concomitant]
  6. RAMIPRIL [Concomitant]

REACTIONS (8)
  - APPLICATION SITE ERYTHEMA [None]
  - APPLICATION SITE IRRITATION [None]
  - APPLICATION SITE PRURITUS [None]
  - APPLICATION SITE RASH [None]
  - DISCOMFORT [None]
  - OPEN WOUND [None]
  - PAIN [None]
  - THERMAL BURN [None]
